FAERS Safety Report 8364029-3 (Version None)
Quarter: 2012Q2

REPORT INFORMATION
  Report Type: 
  Country: None (occurrence: None)
  Receive Date: 20120516
  Receipt Date: 20120223
  Transmission Date: 20120825
  Serious: Yes (Other)
  Sender: FDA-Public Use
  Company Number: US-ALEXION-A201200341

PATIENT
  Sex: Female

DRUGS (3)
  1. TRAZODONE HCL [Concomitant]
  2. SOLIRIS [Suspect]
     Indication: HAEMOLYTIC URAEMIC SYNDROME
     Dosage: UNK
     Route: 042
     Dates: start: 20120215, end: 20120215
  3. CLONIDINE [Concomitant]

REACTIONS (1)
  - LATENT TUBERCULOSIS [None]
